FAERS Safety Report 16971230 (Version 1)
Quarter: 2019Q4

REPORT INFORMATION
  Report Type: Spontaneous
  Country: US (occurrence: US)
  Receive Date: 20191029
  Receipt Date: 20191029
  Transmission Date: 20200122
  Serious: No
  Sender: FDA-Public Use
  Company Number: US-PERRIGO-19US008910

PATIENT
  Age: 55 Year
  Sex: Male
  Weight: 102.04 kg

DRUGS (6)
  1. TESTOSTERONE. [Suspect]
     Active Substance: TESTOSTERONE
     Indication: BLOOD TESTOSTERONE DECREASED
     Dosage: 80 MG, QD
     Route: 061
     Dates: start: 201907, end: 201907
  2. OXYBUTYNIN. [Concomitant]
     Active Substance: OXYBUTYNIN CHLORIDE
     Indication: HYPERTONIC BLADDER
     Dosage: UNK
     Route: 065
  3. PHENTERMINE. [Concomitant]
     Active Substance: PHENTERMINE
     Indication: OBESITY
     Dosage: UNK
     Route: 065
  4. CRESTOR [Concomitant]
     Active Substance: ROSUVASTATIN CALCIUM
     Indication: BLOOD CHOLESTEROL INCREASED
     Dosage: UNK
     Route: 065
  5. XARELTO [Concomitant]
     Active Substance: RIVAROXABAN
     Indication: THROMBOSIS
     Dosage: UNK
     Route: 065
  6. TOPIRAMATE. [Concomitant]
     Active Substance: TOPIRAMATE
     Indication: OBESITY
     Dosage: UNK
     Route: 065

REACTIONS (2)
  - Drug ineffective [Unknown]
  - Erectile dysfunction [Recovered/Resolved]

NARRATIVE: CASE EVENT DATE: 201907
